FAERS Safety Report 8180133-7 (Version None)
Quarter: 2012Q1

REPORT INFORMATION
  Report Type: 
  Country: None (occurrence: None)
  Receive Date: 20120215
  Receipt Date: 20120207
  Transmission Date: 20120608
  Serious: Yes (Other)
  Sender: FDA-Public Use
  Company Number: 2012031043

PATIENT
  Age: 58 Year
  Sex: Female
  Weight: 60.782 kg

DRUGS (11)
  1. PRIVIGEN [Suspect]
     Indication: AUTOIMMUNE THROMBOCYTOPENIA
     Dosage: SEE IMAGE, INTRAVENOUS
     Route: 042
     Dates: start: 20120117, end: 20120117
  2. PRIVIGEN [Suspect]
     Indication: AUTOIMMUNE THROMBOCYTOPENIA
     Dosage: SEE IMAGE, INTRAVENOUS
     Route: 042
     Dates: start: 20110423
  3. PRIVIGEN [Suspect]
  4. HEPARIN [Concomitant]
  5. BONIVA [Concomitant]
  6. PRIVIGEN [Suspect]
  7. PROMETHAZINE [Concomitant]
  8. BACTRIM DS [Concomitant]
  9. PRIVIGEN [Suspect]
  10. TRAMADOL HCL [Concomitant]
  11. SODIUM CHLORIDE 0.9% [Concomitant]

REACTIONS (2)
  - PLATELET COUNT DECREASED [None]
  - DRUG INEFFECTIVE [None]
